FAERS Safety Report 18298424 (Version 1)
Quarter: 2020Q3

REPORT INFORMATION
  Report Type: Spontaneous
  Country: US (occurrence: US)
  Receive Date: 20200922
  Receipt Date: 20200922
  Transmission Date: 20201103
  Serious: No
  Sender: FDA-Public Use
  Company Number: US-AMARIN PHARMA, INC.-2020AMR000040

PATIENT
  Sex: Male

DRUGS (2)
  1. VASCEPA [Suspect]
     Active Substance: ICOSAPENT ETHYL
     Indication: BLOOD DISORDER
  2. VASCEPA [Suspect]
     Active Substance: ICOSAPENT ETHYL
     Indication: GLYCOSYLATED HAEMOGLOBIN ABNORMAL
     Route: 048
     Dates: end: 201912

REACTIONS (5)
  - Lacrimation increased [Unknown]
  - Product odour abnormal [Unknown]
  - Product adhesion issue [Unknown]
  - Off label use [Recovered/Resolved]
  - Nausea [Unknown]

NARRATIVE: CASE EVENT DATE: 201912
